FAERS Safety Report 15474659 (Version 1)
Quarter: 2018Q4

REPORT INFORMATION
  Report Type: Report from Study
  Country: US (occurrence: US)
  Receive Date: 20181008
  Receipt Date: 20181008
  Transmission Date: 20190205
  Serious: Yes (Hospitalization, Other)
  Sender: FDA-Public Use
  Company Number: US-EISAI MEDICAL RESEARCH-EC-2018-041704

PATIENT
  Age: 80 Year
  Sex: Male

DRUGS (2)
  1. AMOXICILLIN. [Concomitant]
     Active Substance: AMOXICILLIN
  2. LENVIMA [Suspect]
     Active Substance: LENVATINIB
     Indication: THYROID CANCER
     Route: 048
     Dates: start: 201802, end: 201809

REACTIONS (8)
  - Lower respiratory tract infection [Recovering/Resolving]
  - Blood pressure increased [Recovering/Resolving]
  - Bone disorder [Recovering/Resolving]
  - Abdominal pain [Recovering/Resolving]
  - Osteonecrosis of jaw [Not Recovered/Not Resolved]
  - Dental caries [Not Recovered/Not Resolved]
  - Contusion [Recovering/Resolving]
  - Hyperaesthesia [Recovering/Resolving]

NARRATIVE: CASE EVENT DATE: 2018
